FAERS Safety Report 17137140 (Version 1)
Quarter: 2019Q4

REPORT INFORMATION
  Report Type: Report from Study
  Country: US (occurrence: US)
  Receive Date: 20191210
  Receipt Date: 20191210
  Transmission Date: 20200122
  Serious: Yes (Hospitalization)
  Sender: FDA-Public Use
  Company Number: US-EXELIXIS-CABO-19024344

PATIENT
  Sex: Female

DRUGS (2)
  1. CABOMETYX [Suspect]
     Active Substance: CABOZANTINIB S-MALATE
     Indication: RENAL CELL CARCINOMA
     Dosage: 60 MG, QD
     Route: 048
  2. CABOMETYX [Suspect]
     Active Substance: CABOZANTINIB S-MALATE
     Dosage: 40 MG, QD
     Route: 048
     Dates: start: 20191021, end: 20191115

REACTIONS (13)
  - Somnolence [Unknown]
  - Urticaria [Unknown]
  - Nausea [Unknown]
  - Memory impairment [Unknown]
  - Epistaxis [Unknown]
  - Fatigue [Unknown]
  - Vomiting [Unknown]
  - Chills [Unknown]
  - Dry mouth [Unknown]
  - Abdominal discomfort [Unknown]
  - Ammonia increased [Unknown]
  - Skin ulcer [Unknown]
  - Decreased appetite [Unknown]
